FAERS Safety Report 7507280-4 (Version None)
Quarter: 2011Q2

REPORT INFORMATION
  Report Type: 
  Country: None (occurrence: None)
  Receive Date: 20110526
  Receipt Date: 20110517
  Transmission Date: 20111010
  Serious: Yes (Hospitalization, Other)
  Sender: FDA-Public Use
  Company Number: BR-MEDIMMUNE-MEDI-0013230

PATIENT
  Sex: Male
  Weight: 9 kg

DRUGS (5)
  1. VALPROIC ACID [Concomitant]
     Dosage: 3 ML EVERY 8 HOURS
     Route: 048
     Dates: start: 20101101
  2. SYNAGIS [Suspect]
     Indication: BRONCHOPULMONARY DYSPLASIA
     Route: 030
     Dates: start: 20100819
  3. ACTH HORMONE [Suspect]
  4. VIGABATRIN [Concomitant]
     Dosage: 1 TAB DILUTED IN 5ML OF WATER, USED 3 ML EVERY 12 HOURS
     Route: 048
     Dates: start: 20101101, end: 20101201
  5. PHENOBARBITAL TAB [Concomitant]
     Route: 048
     Dates: end: 20101001

REACTIONS (6)
  - DYSPNOEA [None]
  - BRONCHOSPASM [None]
  - RESPIRATORY DISTRESS [None]
  - FATIGUE [None]
  - CONVULSION [None]
  - BRONCHOPNEUMONIA [None]
